FAERS Safety Report 18216671 (Version 3)
Quarter: 2024Q3

REPORT INFORMATION
  Report Type: Spontaneous
  Country: US (occurrence: US)
  Receive Date: 20200901
  Receipt Date: 20240820
  Transmission Date: 20241017
  Serious: No
  Sender: SANOFI AVENTIS
  Company Number: US-SA-2020SA234204

PATIENT
  Age: 28 Year
  Sex: Male

DRUGS (2)
  1. DUPIXENT [Suspect]
     Active Substance: DUPILUMAB
     Indication: Neurodermatitis
     Dosage: 300 MG(FREQUENCY: OTHER)
     Route: 058
     Dates: start: 202007, end: 2020
  2. DUPIXENT [Suspect]
     Active Substance: DUPILUMAB
     Dosage: 300 MG, QW
     Route: 058
     Dates: start: 202008

REACTIONS (3)
  - Hypoaesthesia [Unknown]
  - Metabolic surgery [Unknown]
  - Off label use [Unknown]

NARRATIVE: CASE EVENT DATE: 20200801
